FAERS Safety Report 8960496 (Version 1)
Quarter: 2012Q4

REPORT INFORMATION
  Report Type: Spontaneous
  Country: ES (occurrence: None)
  Receive Date: 20121203
  Receipt Date: 20121203
  Transmission Date: 20130627
  Serious: Yes (Other)
  Sender: FDA-Public Use
  Company Number: 2011R1-49669

PATIENT
  Age: 41 Year
  Sex: Female

DRUGS (1)
  1. NAPROXEN (NAPROXEN) UNKNOWN [Suspect]
     Indication: ALLERGY TEST
     Route: 048

REACTIONS (5)
  - Pruritus [None]
  - Cough [None]
  - Discomfort [None]
  - Anaphylactic reaction [None]
  - Loss of consciousness [None]
